FAERS Safety Report 9018361 (Version 1)
Quarter: 2013Q1

REPORT INFORMATION
  Report Type: Spontaneous
  Country: DE (occurrence: DE)
  Receive Date: 20130118
  Receipt Date: 20130118
  Transmission Date: 20140127
  Serious: Yes (Other)
  Sender: FDA-Public Use
  Company Number: DE-TEVA-379389GER

PATIENT
  Age: 54 Year
  Sex: Female

DRUGS (5)
  1. LAMOTRIGINE [Suspect]
     Indication: EPILEPSY
     Dosage: 600 MILLIGRAM DAILY;
     Route: 048
  2. DOXYCYCLINE [Interacting]
     Indication: ROSACEA
  3. ZALDIAR [Interacting]
     Indication: FALL
     Dates: start: 20120917
  4. LEVETIRACETAM-RATIOPHARM 100 MG [Concomitant]
     Indication: EPILEPSY
     Dosage: 600 MILLIGRAM DAILY;
     Route: 048
  5. FRISIUM [Concomitant]

REACTIONS (3)
  - Epilepsy [Not Recovered/Not Resolved]
  - Drug level decreased [Recovered/Resolved]
  - Drug interaction [Unknown]
